FAERS Safety Report 9436540 (Version 1)
Quarter: 2013Q3

REPORT INFORMATION
  Report Type: Spontaneous
  Country: US (occurrence: US)
  Receive Date: 20130802
  Receipt Date: 20130802
  Transmission Date: 20140515
  Serious: No
  Sender: FDA-Public Use
  Company Number: US-OPTIMER-20130118

PATIENT
  Sex: Female

DRUGS (4)
  1. DIFICID [Suspect]
     Indication: CLOSTRIDIUM DIFFICILE COLITIS
     Dosage: 200 MG, BID
     Route: 048
     Dates: start: 20130226, end: 20130307
  2. VANCOMYCIN [Concomitant]
     Indication: CLOSTRIDIUM DIFFICILE COLITIS
     Dosage: UNK
     Dates: start: 201301, end: 201301
  3. VANCOMYCIN [Concomitant]
     Dosage: UNK
     Dates: start: 201302, end: 201302
  4. VANCOMYCIN [Concomitant]
     Dosage: UNK
     Dates: start: 201303

REACTIONS (2)
  - Clostridium difficile colitis [Recovering/Resolving]
  - Disease recurrence [Recovering/Resolving]
